FAERS Safety Report 8913787 (Version 1)
Quarter: 2012Q4

REPORT INFORMATION
  Report Type: 
  Country: DE (occurrence: DE)
  Receive Date: 20121119
  Receipt Date: 20121119
  Transmission Date: 20130627
  Serious: Yes (Death, Life-Threatening, Hospitalization, Other)
  Sender: FDA-Public Use
  Company Number: DE-ROXANE LABORATORIES, INC.-2012-RO-02361RO

PATIENT
  Age: 37 Week
  Sex: Male

DRUGS (3)
  1. METHADONE [Suspect]
     Indication: MATERNAL EXPOSURE DURING PREGNANCY
     Route: 064
  2. PHENOBARBITONE [Suspect]
     Indication: AGITATION NEONATAL
  3. PHENOBARBITONE [Suspect]

REACTIONS (15)
  - Cardiac arrest neonatal [Fatal]
  - Pneumonia [Unknown]
  - Respiratory arrest [Unknown]
  - Drug withdrawal syndrome neonatal [Recovered/Resolved]
  - Agitation neonatal [Recovered/Resolved]
  - Respiratory tract infection [Unknown]
  - Convulsion [Unknown]
  - Bronchitis [Unknown]
  - Klebsiella infection [Unknown]
  - Candidiasis [Unknown]
  - Clostridium test positive [Unknown]
  - Myocarditis [Unknown]
  - Chronic hepatitis [Unknown]
  - Glomerulonephritis [Unknown]
  - Meningitis [Unknown]
